FAERS Safety Report 7216004-X (Version None)
Quarter: 2011Q1

REPORT INFORMATION
  Report Type: 
  Country: None (occurrence: None)
  Receive Date: 20110104
  Receipt Date: 20110104
  Transmission Date: 20110831
  Serious: Yes (Other)
  Sender: FDA-Public Use
  Company Number: None

PATIENT
  Age: 74 Year
  Sex: Male
  Weight: 93.441 kg

DRUGS (1)
  1. MELOXICAM [Suspect]
     Indication: OSTEOARTHRITIS
     Dosage: 60 ONCE DAILY
     Dates: start: 20101128, end: 20101228

REACTIONS (5)
  - OEDEMA PERIPHERAL [None]
  - RASH PRURITIC [None]
  - RHINORRHOEA [None]
  - VISUAL IMPAIRMENT [None]
  - INSOMNIA [None]
